FAERS Safety Report 9193932 (Version 1)
Quarter: 2013Q1

REPORT INFORMATION
  Report Type: Spontaneous
  Country: US (occurrence: US)
  Receive Date: 20130327
  Receipt Date: 20130327
  Transmission Date: 20140127
  Serious: No
  Sender: FDA-Public Use
  Company Number: US-ASTRAZENECA-2013SE18151

PATIENT
  Age: 24 Year
  Sex: Male
  Weight: 72.6 kg

DRUGS (2)
  1. SYMBICORT [Suspect]
     Indication: ASTHMA
     Dosage: 160/4.5 MCG, 2 PUFFS BID
     Route: 055
  2. ALBUTEROL [Concomitant]
     Indication: INHALATION THERAPY
     Route: 055

REACTIONS (2)
  - Dyspnoea [Unknown]
  - Off label use [Unknown]
